FAERS Safety Report 5830726-4 (Version None)
Quarter: 2008Q3

REPORT INFORMATION
  Report Type: 
  Country: None (occurrence: None)
  Receive Date: 20080801
  Receipt Date: 20071023
  Transmission Date: 20090109
  Serious: No
  Sender: FDA-Public Use
  Company Number: US-BRISTOL-MYERS SQUIBB COMPANY-13953013

PATIENT
  Age: 42 Year
  Sex: Female

DRUGS (12)
  1. COUMADIN [Suspect]
     Indication: HEART VALVE REPLACEMENT
  2. COUMADIN [Suspect]
     Indication: HEART VALVE OPERATION
  3. ASPIRIN [Concomitant]
  4. LORATADINE [Concomitant]
  5. FUROSEMIDE [Concomitant]
  6. METOPROLOL [Concomitant]
  7. POTASSIUM CHLORIDE [Concomitant]
  8. PRILOSEC [Concomitant]
  9. SIMVASTATIN [Concomitant]
  10. SPIRONOLACTONE [Concomitant]
  11. SYNTHROID [Concomitant]
  12. ANTIBIOTICS [Concomitant]

REACTIONS (1)
  - SPIDER VEIN [None]
